FAERS Safety Report 20382456 (Version 1)
Quarter: 2022Q1

REPORT INFORMATION
  Report Type: Report from Study
  Country: JP (occurrence: JP)
  Receive Date: 20220127
  Receipt Date: 20220127
  Transmission Date: 20220423
  Serious: Yes (Death, Other)
  Sender: FDA-Public Use
  Company Number: JP-PFIZER INC-202200129116

PATIENT
  Sex: Female

DRUGS (2)
  1. DOXORUBICIN HYDROCHLORIDE [Suspect]
     Active Substance: DOXORUBICIN HYDROCHLORIDE
     Indication: Ovarian cancer
     Dosage: UNK (40 MG/M^2 OR 50 MG/M^2, 1 MG/MIN ON DAY 1 WITH A CYCLE EQUAL TO 28 D)
     Route: 042
  2. BEVACIZUMAB [Suspect]
     Active Substance: BEVACIZUMAB
     Indication: Ovarian cancer
     Dosage: UNK, CYCLIC

REACTIONS (4)
  - Bacteraemia [Fatal]
  - Melaena [Unknown]
  - Neutrophil count decreased [Unknown]
  - Platelet count decreased [Unknown]
